FAERS Safety Report 9022094 (Version 1)
Quarter: 2013Q1

REPORT INFORMATION
  Report Type: Spontaneous
  Country: GB (occurrence: GB)
  Receive Date: 20130118
  Receipt Date: 20130118
  Transmission Date: 20140127
  Serious: Yes (Other)
  Sender: FDA-Public Use
  Company Number: GB-GLAXOSMITHKLINE-B0858435A

PATIENT
  Age: 38 Year
  Sex: Male

DRUGS (4)
  1. RETIGABINE [Suspect]
     Indication: PARTIAL SEIZURES
     Dosage: 600MG PER DAY
     Route: 048
     Dates: start: 20120927
  2. LEVETIRACETAM [Concomitant]
     Dosage: 3000MG PER DAY
  3. OXCARBAZEPINE [Concomitant]
     Dosage: 900MG PER DAY
  4. CLOBAZAM [Concomitant]
     Dosage: 20MG PER DAY

REACTIONS (2)
  - Hypotension [Recovered/Resolved]
  - Syncope [Unknown]
